FAERS Safety Report 8067689-X (Version None)
Quarter: 2012Q1

REPORT INFORMATION
  Report Type: 
  Country: None (occurrence: None)
  Receive Date: 20120124
  Receipt Date: 20120113
  Transmission Date: 20120608
  Serious: Yes (Hospitalization)
  Sender: FDA-Public Use
  Company Number: FR-BAXTER-2010BH026360

PATIENT
  Age: 84 Year
  Sex: Female
  Weight: 70 kg

DRUGS (4)
  1. FEIBA [Suspect]
     Indication: ACQUIRED HAEMOPHILIA
     Route: 065
  2. FEIBA [Suspect]
     Route: 065
     Dates: start: 20090718
  3. FEIBA [Suspect]
     Indication: ANTI FACTOR VIII ANTIBODY TEST
     Route: 065
  4. FEIBA [Suspect]
     Route: 065
     Dates: start: 20090718

REACTIONS (1)
  - ERYSIPELAS [None]
